FAERS Safety Report 4562289-8 (Version None)
Quarter: 2005Q1

REPORT INFORMATION
  Report Type: 
  Country: None (occurrence: None)
  Receive Date: 20050121
  Receipt Date: 20050114
  Transmission Date: 20050727
  Serious: Yes (Hospitalization, Disabling)
  Sender: FDA-Public Use
  Company Number: CIP03002486

PATIENT
  Age: 73 Year
  Sex: Female
  Weight: 83.6 kg

DRUGS (8)
  1. ACTONEL [Suspect]
     Indication: OSTEOPOROSIS
     Dosage: 5  MG DAILY, ORAL
     Route: 048
     Dates: start: 20030502, end: 20030825
  2. ACTONEL [Suspect]
     Indication: OSTEOPOROSIS
     Dosage: 5  MG DAILY, ORAL
     Route: 048
     Dates: start: 20030828
  3. PREDNISONE [Concomitant]
  4. OSCAL (CALCIUM CARBONATE) [Concomitant]
  5. VITAMIN D [Concomitant]
  6. LASIX [Concomitant]
  7. PRINZIDE [Concomitant]
  8. ZOCOR [Concomitant]

REACTIONS (5)
  - ARTHRITIS BACTERIAL [None]
  - FALL [None]
  - HERPES SIMPLEX [None]
  - LOWER LIMB FRACTURE [None]
  - PYREXIA [None]
